FAERS Safety Report 6976260-X (Version None)
Quarter: 2010Q3

REPORT INFORMATION
  Report Type: 
  Country: None (occurrence: None)
  Receive Date: 20100910
  Receipt Date: 20090423
  Transmission Date: 20110219
  Serious: No
  Sender: FDA-Public Use
  Company Number: US-WYE-H09111509

PATIENT
  Sex: Female
  Weight: 109.41 kg

DRUGS (4)
  1. PRISTIQ [Suspect]
     Indication: DEPRESSION
     Route: 048
     Dates: start: 20080601
  2. PRISTIQ [Suspect]
     Indication: PANIC DISORDER
     Route: 048
  3. NEURONTIN [Concomitant]
  4. KLONOPIN [Concomitant]

REACTIONS (7)
  - ARTHRALGIA [None]
  - BLOOD CREATININE INCREASED [None]
  - DIABETES MELLITUS [None]
  - GAIT DISTURBANCE [None]
  - OEDEMA PERIPHERAL [None]
  - STRESS [None]
  - WEIGHT INCREASED [None]
